FAERS Safety Report 21842164 (Version 2)
Quarter: 2023Q1

REPORT INFORMATION
  Report Type: Spontaneous
  Country: DE (occurrence: DE)
  Receive Date: 20230110
  Receipt Date: 20230118
  Transmission Date: 20230417
  Serious: Yes (Other)
  Sender: FDA-Public Use
  Company Number: None

PATIENT
  Age: 32 Year
  Sex: Male

DRUGS (4)
  1. RISPERIDONE [Suspect]
     Active Substance: RISPERIDONE
     Indication: Product used for unknown indication
     Dosage: B.A.W.
     Route: 048
     Dates: start: 20220511
  2. FLUPENTIXOL [Suspect]
     Active Substance: FLUPENTIXOL
     Indication: Product used for unknown indication
     Dosage: UNKNOWN
     Route: 048
     Dates: start: 20220517, end: 20220521
  3. PIPAMPERONE [Suspect]
     Active Substance: PIPAMPERONE
     Indication: Product used for unknown indication
     Dosage: UNKNOWN
     Route: 048
     Dates: start: 20220502, end: 20220601
  4. LORAZEPAM [Concomitant]
     Active Substance: LORAZEPAM
     Indication: Product used for unknown indication
     Dosage: UNKNOWN
     Route: 048
     Dates: start: 20220425, end: 20220608

REACTIONS (3)
  - Joint dislocation [Recovered/Resolved]
  - Pain in jaw [Recovered/Resolved]
  - Dyskinesia [Recovered/Resolved]

NARRATIVE: CASE EVENT DATE: 20220521
